FAERS Safety Report 8521344-8 (Version None)
Quarter: 2012Q3

REPORT INFORMATION
  Report Type: 
  Country: None (occurrence: None)
  Receive Date: 20120717
  Receipt Date: 20120712
  Transmission Date: 20120928
  Serious: Yes (Death)
  Sender: FDA-Public Use
  Company Number: US-ASTELLAS-2011US006855

PATIENT
  Sex: Female

DRUGS (1)
  1. ERLOTINIB HYDROCHLORIDE [Suspect]
     Indication: PANCREATIC CARCINOMA
     Dosage: 100 MG, UID/QD
     Route: 048
     Dates: start: 20110930

REACTIONS (9)
  - BALANCE DISORDER [None]
  - INFLUENZA [None]
  - DEHYDRATION [None]
  - FATIGUE [None]
  - DIZZINESS [None]
  - RHINORRHOEA [None]
  - NASAL CONGESTION [None]
  - DEATH [None]
  - RASH [None]
